FAERS Safety Report 22251884 (Version 7)
Quarter: 2023Q2

REPORT INFORMATION
  Report Type: Report from Study
  Country: PT (occurrence: PT)
  Receive Date: 20230425
  Receipt Date: 20230620
  Transmission Date: 20230721
  Serious: Yes (Other)
  Sender: FDA-Public Use
  Company Number: PT-ABBVIE-4735512

PATIENT
  Age: 72 Year
  Sex: Female

DRUGS (12)
  1. CARBIDOPA\LEVODOPA [Suspect]
     Active Substance: CARBIDOPA\LEVODOPA
     Indication: Parkinson^s disease
     Dosage: 20 MG PLUS 5 MG, MORNING 13.6, MAINTENANCE 3.2, EXTRA 1CC
     Route: 050
     Dates: start: 20210413
  2. CARBIDOPA\LEVODOPA [Suspect]
     Active Substance: CARBIDOPA\LEVODOPA
     Dosage: 20 MG PLUS 5 MG, MORNING 10, MAINTENANCE 3.9, EXTRA 2CC
     Route: 050
     Dates: start: 202303, end: 202304
  3. CARBIDOPA\LEVODOPA [Suspect]
     Active Substance: CARBIDOPA\LEVODOPA
     Dosage: 20 MG + 5 MG?MORNING :10;MAINTENANCE :4.2;EXTRA:2CC
     Route: 050
     Dates: start: 202304, end: 20230529
  4. CARBIDOPA\LEVODOPA [Suspect]
     Active Substance: CARBIDOPA\LEVODOPA
     Dosage: 20 MG + 5 MG?MORNING :10CC;MAINTENANCE :3.9CC/H;EXTRA:2CC
     Route: 050
     Dates: start: 20230612, end: 20230613
  5. CARBIDOPA\LEVODOPA [Suspect]
     Active Substance: CARBIDOPA\LEVODOPA
     Dosage: 20 MG + 5 MG?MORNING :10CC;MAINTENANCE :3.6CC/H;EXTRA:2CC
     Route: 050
     Dates: start: 20230613, end: 20230615
  6. CARBIDOPA\LEVODOPA [Suspect]
     Active Substance: CARBIDOPA\LEVODOPA
     Dosage: 20 MG + 5 MG?MORN:10CC;MAIN:3.7CC/H;EXTRA:2CC
     Route: 050
     Dates: start: 20230615
  7. Clavamox DT (amoxicillin + clavulanic acid) [Concomitant]
     Indication: Urinary tract disorder
     Dates: start: 2023
  8. Sinemet cr (levodopa+ carbidopa) [Concomitant]
     Indication: Product used for unknown indication
     Route: 065
     Dates: start: 20230529
  9. AMOXICILLIN\CLAVULANATE POTASSIUM [Concomitant]
     Active Substance: AMOXICILLIN\CLAVULANATE POTASSIUM
     Indication: Thrombophlebitis
     Route: 065
     Dates: start: 2021
  10. PRAMIPEXOLE [Concomitant]
     Active Substance: PRAMIPEXOLE
     Indication: Product used for unknown indication
     Dosage: STARTED BEFORE DUODOPA
     Route: 065
  11. METRONIDAZOLE [Concomitant]
     Active Substance: METRONIDAZOLE
     Indication: Thrombophlebitis
     Route: 065
     Dates: start: 2021
  12. DULOXETINE [Concomitant]
     Active Substance: DULOXETINE
     Indication: Product used for unknown indication
     Dosage: STARTED BEFORE DUODOPA
     Route: 065

REACTIONS (5)
  - Stoma site discharge [Recovered/Resolved]
  - Candida infection [Recovered/Resolved]
  - Bradykinesia [Recovered/Resolved]
  - Stoma site odour [Recovered/Resolved]
  - Dyskinesia [Recovered/Resolved]

NARRATIVE: CASE EVENT DATE: 20230417
